FAERS Safety Report 24177185 (Version 1)
Quarter: 2024Q3

REPORT INFORMATION
  Report Type: Spontaneous
  Country: US (occurrence: US)
  Receive Date: 20240806
  Receipt Date: 20240806
  Transmission Date: 20241017
  Serious: Yes (Other)
  Sender: AMNEAL
  Company Number: US-AMNEAL-2024-AMRX-01415

PATIENT
  Age: 52 Year
  Sex: Female

DRUGS (2)
  1. BACLOFEN [Suspect]
     Active Substance: BACLOFEN
     Indication: Cerebrovascular accident
     Dosage: UNK
     Route: 037
  2. BACLOFEN [Suspect]
     Active Substance: BACLOFEN
     Indication: Epilepsy

REACTIONS (2)
  - Infection [Not Recovered/Not Resolved]
  - Device leakage [Unknown]

NARRATIVE: CASE EVENT DATE: 20200311
